FAERS Safety Report 16480324 (Version 12)
Quarter: 2022Q1

REPORT INFORMATION
  Report Type: Spontaneous
  Country: US (occurrence: US)
  Receive Date: 20190626
  Receipt Date: 20220308
  Transmission Date: 20220423
  Serious: Yes (Hospitalization)
  Sender: FDA-Public Use
  Company Number: US-PFIZER INC-2019273750

PATIENT
  Age: 71 Year
  Sex: Female
  Weight: 93 kg

DRUGS (8)
  1. IBRANCE [Suspect]
     Active Substance: PALBOCICLIB
     Indication: Breast cancer metastatic
     Dosage: 125 MG, CYCLIC (ONCE DAILY FOR 21 DAYS THEN OFF FOR 7 DAYS)
     Route: 048
     Dates: start: 201905, end: 2019
  2. IBRANCE [Suspect]
     Active Substance: PALBOCICLIB
     Dosage: 100 MG, 1X/DAY
  3. IBRANCE [Suspect]
     Active Substance: PALBOCICLIB
     Dosage: 75 MG, CYCLIC
     Dates: start: 20220221
  4. ANASTROZOLE [Concomitant]
     Active Substance: ANASTROZOLE
     Dosage: 1 MG, MONTHLY
  5. ASPIRIN [Concomitant]
     Active Substance: ASPIRIN
     Dosage: UNK
  6. METFORMIN [Concomitant]
     Active Substance: METFORMIN HYDROCHLORIDE
     Dosage: UNK
  7. PROZAC [Concomitant]
     Active Substance: FLUOXETINE HYDROCHLORIDE
     Dosage: UNK
  8. TRAZODONE [Concomitant]
     Active Substance: TRAZODONE HYDROCHLORIDE
     Indication: Insomnia
     Dosage: 200 MG, 1X/DAY (2-100MG TABLETS TAKEN BY MOUTH AT NIGHT)
     Route: 048
     Dates: start: 2000

REACTIONS (8)
  - Nausea [Recovered/Resolved]
  - White blood cell count decreased [Recovered/Resolved]
  - Lymphoedema [Unknown]
  - Swelling [Unknown]
  - Fall [Unknown]
  - Mental disorder [Unknown]
  - Scar [Unknown]
  - Tooth extraction [Unknown]

NARRATIVE: CASE EVENT DATE: 20190604
